FAERS Safety Report 17638542 (Version 1)
Quarter: 2020Q2

REPORT INFORMATION
  Report Type: Spontaneous
  Country: US (occurrence: US)
  Receive Date: 20200407
  Receipt Date: 20200407
  Transmission Date: 20200713
  Serious: No
  Sender: FDA-Public Use
  Company Number: None

PATIENT
  Age: 60 Year
  Sex: Female
  Weight: 119.25 kg

DRUGS (16)
  1. SODIUM CHLORIDE 1GRAM, ORAL [Concomitant]
     Dates: end: 20200407
  2. INCRUSE ELLIPTA, 62.5MCG, INHALER [Concomitant]
     Dates: end: 20200407
  3. KEPPRA 500MG, ORAL [Concomitant]
     Dates: end: 20200407
  4. PROTONIX 40MG, ORAL [Concomitant]
     Dates: end: 20200407
  5. DEXAMETHASONE, 4MG, ORAL [Concomitant]
     Dates: end: 20200407
  6. FLUTICASONE, 50MCG/ACTUATION, INHALER [Concomitant]
     Dates: end: 20200407
  7. ALBUTEROL SULFATE HFA 108 MG, ORAL [Concomitant]
     Dates: end: 20200407
  8. BREO ELLIPTA 200 - 25MG, INHALER [Concomitant]
     Dates: end: 20200407
  9. ALBUTEROL SULFATE 2.5MG/3ML, INHALER [Concomitant]
     Dates: end: 20200407
  10. OXYBUTYNIN CHLORIDE ER 5MG, ORAL [Concomitant]
     Dates: end: 20200407
  11. TUBERSOL 5 UNIT/0.1ML, ID [Concomitant]
     Dates: end: 20200407
  12. TEMOZOLOMIDE. [Suspect]
     Active Substance: TEMOZOLOMIDE
     Indication: NON-SMALL CELL LUNG CANCER
     Route: 048
     Dates: start: 20200310, end: 20200318
  13. TUBERCULIN SYRINGE [Concomitant]
     Active Substance: DEVICE
     Dates: end: 20200407
  14. LEXAPRO, 10MG, ORAL [Concomitant]
     Dates: end: 20200407
  15. CLONAZEPAM 1 MG, ORAL [Concomitant]
     Dates: end: 20200407
  16. ACETAMINOPHEN EXTRA STRENGTH, 500MG, ORAL [Concomitant]
     Dates: end: 20200407

REACTIONS (1)
  - Metastases to central nervous system [None]

NARRATIVE: CASE EVENT DATE: 20200407
